FAERS Safety Report 8490982-3 (Version None)
Quarter: 2012Q2

REPORT INFORMATION
  Report Type: 
  Country: None (occurrence: None)
  Receive Date: 20120625
  Receipt Date: 20120613
  Transmission Date: 20120825
  Serious: Yes (Other)
  Sender: FDA-Public Use
  Company Number: 2012032627

PATIENT
  Sex: Female
  Weight: 53.978 kg

DRUGS (1)
  1. HIZENTRA [Suspect]
     Indication: IMMUNODEFICIENCY COMMON VARIABLE
     Dosage: (16 G 1X/WEEK, OVER 4 HOURS SUBCUTANEOUS)
     Route: 058
     Dates: start: 20120426, end: 20120614

REACTIONS (2)
  - ABSCESS STERILE [None]
  - FAT NECROSIS [None]
